FAERS Safety Report 8964532 (Version 1)
Quarter: 2012Q4

REPORT INFORMATION
  Report Type: 
  Country: US (occurrence: US)
  Receive Date: 20121214
  Receipt Date: 20121214
  Transmission Date: 20130627
  Serious: Yes (Other)
  Sender: FDA-Public Use
  Company Number: US-ASTRAZENECA-2012SE91845

PATIENT
  Age: 45 Year
  Sex: Female
  Weight: 63.5 kg

DRUGS (5)
  1. NEXIUM [Suspect]
     Indication: GASTROOESOPHAGEAL REFLUX DISEASE
     Route: 048
     Dates: start: 20121204
  2. ZYRTEC [Concomitant]
  3. NADOLOL [Concomitant]
     Indication: TREMOR
  4. B12 [Concomitant]
  5. SYNTHROID [Concomitant]

REACTIONS (1)
  - Anaphylactic reaction [Recovered/Resolved]
